FAERS Safety Report 7763135-1 (Version None)
Quarter: 2011Q3

REPORT INFORMATION
  Report Type: 
  Country: None (occurrence: None)
  Receive Date: 20110920
  Receipt Date: 20110906
  Transmission Date: 20111222
  Serious: Yes (Hospitalization)
  Sender: FDA-Public Use
  Company Number: PHHO2011JP15297

PATIENT
  Sex: Male
  Weight: 74 kg

DRUGS (13)
  1. ALISKIREN [Suspect]
     Dosage: 150 MG, QD
     Route: 048
     Dates: start: 20110518, end: 20110628
  2. ALISKIREN [Suspect]
     Dosage: 300 MG, QD
     Route: 048
     Dates: start: 20110629
  3. ENALAPRIL MALEATE [Suspect]
     Dosage: 10 MG, QD
     Route: 048
     Dates: start: 20110406, end: 20110418
  4. RABEPRAZOLE SODIUM [Concomitant]
     Indication: GASTRITIS PROPHYLAXIS
     Dosage: 10 MG, UNK
     Route: 048
     Dates: start: 20101129
  5. TORSEMIDE [Suspect]
     Indication: CARDIAC FAILURE CHRONIC
     Dosage: 8 MG, QD
     Route: 048
     Dates: start: 20110114
  6. ASPIRIN [Concomitant]
     Indication: THROMBOSIS PROPHYLAXIS
     Dosage: 100 MG, UNK
     Route: 048
     Dates: start: 20110112
  7. LIPITOR [Concomitant]
     Indication: LIPID METABOLISM DISORDER
     Dosage: 10 MG, UNK
     Route: 048
     Dates: start: 20110112
  8. CARVEDILOL [Suspect]
     Indication: CARDIAC FAILURE CHRONIC
     Dosage: 40 MG, QD
     Route: 048
     Dates: start: 20110518
  9. AMARYL [Concomitant]
     Indication: TYPE 2 DIABETES MELLITUS
     Dosage: 1 MG, UNK
     Route: 048
     Dates: start: 20110127
  10. ENALAPRIL MALEATE [Suspect]
     Dosage: 20 MG, QD
     Route: 048
     Dates: start: 20110419
  11. HYALEIN [Concomitant]
     Indication: PROPHYLAXIS
     Dosage: UNK
     Route: 048
     Dates: start: 20110531
  12. PLAVIX [Concomitant]
     Indication: PLATELET AGGREGATION INHIBITION
     Dosage: 100 MG, UNK
     Route: 048
     Dates: start: 20110201
  13. SITAGLIPTIN PHOSPHATE [Concomitant]
     Indication: TYPE 2 DIABETES MELLITUS
     Dosage: 50 MG, UNK
     Route: 048
     Dates: start: 20110201

REACTIONS (1)
  - CARDIAC FAILURE [None]
